FAERS Safety Report 6338688-0 (Version None)
Quarter: 2009Q3

REPORT INFORMATION
  Report Type: 
  Country: None (occurrence: None)
  Receive Date: 20090903
  Receipt Date: 20090827
  Transmission Date: 20100115
  Serious: Yes (Other)
  Sender: FDA-Public Use
  Company Number: US-BIOGENIDEC-2009BI027428

PATIENT
  Age: 54 Year
  Sex: Male

DRUGS (1)
  1. AVONEX [Suspect]
     Indication: MULTIPLE SCLEROSIS
     Route: 030
     Dates: start: 20020101, end: 20060101

REACTIONS (6)
  - COMA [None]
  - CONVULSION [None]
  - ENTERAL NUTRITION [None]
  - GENERAL SYMPTOM [None]
  - SPEECH DISORDER [None]
  - URINARY TRACT INFECTION [None]
